FAERS Safety Report 25578652 (Version 2)
Quarter: 2025Q3

REPORT INFORMATION
  Report Type: Report from Study
  Country: KR (occurrence: KR)
  Receive Date: 20250718
  Receipt Date: 20250728
  Transmission Date: 20251021
  Serious: Yes (Other)
  Sender: TAKEDA
  Company Number: KR-TAKEDA-2025TUS064205

PATIENT
  Age: 71 Year
  Sex: Male

DRUGS (2)
  1. MOBOCERTINIB [Suspect]
     Active Substance: MOBOCERTINIB
     Indication: Non-small cell lung cancer
     Dates: start: 20221121, end: 20241125
  2. MOBOCERTINIB [Suspect]
     Active Substance: MOBOCERTINIB
     Indication: EGFR gene mutation

REACTIONS (1)
  - Non-small cell lung cancer [Unknown]

NARRATIVE: CASE EVENT DATE: 20241126
